FAERS Safety Report 9855848 (Version 1)
Quarter: 2014Q1

REPORT INFORMATION
  Report Type: Report from Study
  Country: AU (occurrence: AU)
  Receive Date: 20140130
  Receipt Date: 20140130
  Transmission Date: 20141002
  Serious: Yes (Other)
  Sender: FDA-Public Use
  Company Number: PHHY2014AU008812

PATIENT
  Age: 18 Year
  Sex: Male

DRUGS (1)
  1. CLOZARIL [Suspect]
     Dosage: 600 MG, UNK
     Dates: start: 20130207

REACTIONS (2)
  - Encephalitis [Unknown]
  - Neutrophil count decreased [Unknown]
